FAERS Safety Report 11098097 (Version 2)
Quarter: 2015Q2

REPORT INFORMATION
  Report Type: Report from Study
  Country: BR (occurrence: BR)
  Receive Date: 20150507
  Receipt Date: 20150515
  Transmission Date: 20150821
  Serious: Yes (Death, Life-Threatening, Hospitalization, Other)
  Sender: FDA-Public Use
  Company Number: BR-ALEXION-A201501612

PATIENT

DRUGS (3)
  1. LAMIVUDINA [Concomitant]
     Active Substance: LAMIVUDINE
     Indication: HEPATITIS C
     Dosage: 150 MG, UNK
     Route: 048
  2. SOLIRIS [Suspect]
     Active Substance: ECULIZUMAB
     Indication: PAROXYSMAL NOCTURNAL HAEMOGLOBINURIA
     Dosage: 600 MG, QW
     Route: 042
     Dates: start: 20110428, end: 20110519
  3. SOLIRIS [Suspect]
     Active Substance: ECULIZUMAB
     Dosage: 900 MG, Q2W
     Route: 042
     Dates: start: 20110526

REACTIONS (3)
  - Coma [Fatal]
  - Pancytopenia [Unknown]
  - Sepsis [Fatal]

NARRATIVE: CASE EVENT DATE: 20150422
